FAERS Safety Report 9206077 (Version 2)
Quarter: 2013Q4

REPORT INFORMATION
  Report Type: Spontaneous
  Country: US (occurrence: US)
  Receive Date: 20130403
  Receipt Date: 20131031
  Transmission Date: 20140711
  Serious: Yes (Other)
  Sender: FDA-Public Use
  Company Number: US-BAYER-2013-039985

PATIENT
  Age: 24 Year
  Sex: Female

DRUGS (5)
  1. YAZ [Suspect]
  2. YASMIN [Suspect]
  3. NEXIUM [Concomitant]
     Dosage: 40 MG, UNK
  4. BUPROPION HYDROCHLORIDE [Concomitant]
     Dosage: UNK, 12 HOUR EXTENDED RELEASE
  5. HUMALOG [Concomitant]
     Dosage: 100 U/ML, UNK

REACTIONS (6)
  - Gallbladder injury [None]
  - Biliary dyskinesia [None]
  - Cholecystitis chronic [None]
  - Injury [None]
  - Pain [None]
  - Pain [None]
